FAERS Safety Report 8974129 (Version 1)
Quarter: 2013Q1

REPORT INFORMATION
  Report Type: Spontaneous
  Country: US (occurrence: None)
  Receive Date: 20121213
  Receipt Date: 20121213
  Transmission Date: 20140127
  Serious: Yes (Hospitalization)
  Sender: FDA-Public Use
  Company Number: None

PATIENT
  Age: 41 Year
  Sex: Female
  Weight: 83.46 kg

DRUGS (10)
  1. SUNITINIB [Suspect]
     Indication: BLADDER CANCER
     Dates: start: 20071004, end: 20071101
  2. ACETAMINOPHEN-HYDROCODONE [Concomitant]
  3. BUPROPION SR 150 MYLAN [Concomitant]
  4. FEXOFENADINE [Concomitant]
  5. OMEPRAZOLE [Concomitant]
  6. PHENAZOPYRIDINE [Concomitant]
  7. ATENOLOL [Concomitant]
  8. FLUTICASONE [Concomitant]
  9. ALPRAZOLAM [Concomitant]
  10. PAROXETINE [Concomitant]

REACTIONS (3)
  - Small intestinal obstruction [None]
  - Ileus [None]
  - Vomiting [None]
